FAERS Safety Report 8286032-4 (Version None)
Quarter: 2012Q2

REPORT INFORMATION
  Report Type: 
  Country: None (occurrence: None)
  Receive Date: 20120416
  Receipt Date: 20120406
  Transmission Date: 20120825
  Serious: Yes (Hospitalization)
  Sender: FDA-Public Use
  Company Number: US-BIOGENIDEC-2012BI010042

PATIENT
  Sex: Female

DRUGS (7)
  1. AVONEX [Suspect]
     Indication: MULTIPLE SCLEROSIS
     Route: 030
     Dates: start: 19970812, end: 19990224
  2. AVONEX [Suspect]
     Route: 030
     Dates: start: 20000810, end: 20010214
  3. AVONEX [Suspect]
     Route: 030
     Dates: start: 20090829
  4. AVONEX [Suspect]
     Route: 030
     Dates: start: 20070501, end: 20070903
  5. TYLENOL (CAPLET) [Concomitant]
     Indication: PREMEDICATION
  6. AVONEX [Suspect]
     Route: 030
     Dates: start: 20080108, end: 20090801
  7. PILLS (NOS) [Concomitant]

REACTIONS (17)
  - APHAGIA [None]
  - HYPOAESTHESIA [None]
  - DYSPHAGIA [None]
  - CARPAL TUNNEL SYNDROME [None]
  - INTERVERTEBRAL DISC PROTRUSION [None]
  - ARTHRALGIA [None]
  - MUSCLE SPASTICITY [None]
  - PRURITUS [None]
  - PROCEDURAL PAIN [None]
  - GAIT DISTURBANCE [None]
  - INFLUENZA LIKE ILLNESS [None]
  - MOTOR DYSFUNCTION [None]
  - PARAESTHESIA [None]
  - CERVICOBRACHIAL SYNDROME [None]
  - APHONIA [None]
  - JOINT HYPEREXTENSION [None]
  - COORDINATION ABNORMAL [None]
